FAERS Safety Report 19873567 (Version 2)
Quarter: 2021Q3

REPORT INFORMATION
  Report Type: Spontaneous
  Country: JP (occurrence: JP)
  Receive Date: 20210923
  Receipt Date: 20210929
  Transmission Date: 20211014
  Serious: Yes (Other)
  Sender: FDA-Public Use
  Company Number: JP-PFIZER INC-202101236493

PATIENT
  Age: 70 Year
  Sex: Male

DRUGS (2)
  1. BRAFTOVI [Suspect]
     Active Substance: ENCORAFENIB
     Indication: COLON CANCER
     Dosage: 300 MG
     Route: 048
     Dates: start: 20210714, end: 20210804
  2. MEKTOVI [Suspect]
     Active Substance: BINIMETINIB
     Indication: COLON CANCER
     Dosage: 45 MG
     Route: 048
     Dates: start: 20210714, end: 20210804

REACTIONS (3)
  - Neoplasm progression [Not Recovered/Not Resolved]
  - Renal disorder [Unknown]
  - Duodenal ulcer [Unknown]
